FAERS Safety Report 5486148-1 (Version None)
Quarter: 2007Q4

REPORT INFORMATION
  Report Type: 
  Country: None (occurrence: None)
  Receive Date: 20071015
  Receipt Date: 20071005
  Transmission Date: 20080405
  Serious: Yes (Other)
  Sender: FDA-Public Use
  Company Number: US-PFIZER INC-2007083993

PATIENT
  Sex: Female

DRUGS (42)
  1. LIPITOR [Suspect]
     Indication: BLOOD CHOLESTEROL
  2. NEURONTIN [Suspect]
     Indication: BONE PAIN
  3. NEURONTIN [Suspect]
     Indication: COMPLEX REGIONAL PAIN SYNDROME
  4. FLEXERIL [Suspect]
  5. DIGITEK [Suspect]
  6. WARFARIN SODIUM [Suspect]
  7. TOPROL-XL [Concomitant]
  8. TOPROL-XL [Concomitant]
  9. KLOR-CON [Concomitant]
  10. KLOR-CON [Concomitant]
  11. SYNTHROID [Concomitant]
  12. SYNTHROID [Concomitant]
  13. KLONOPIN [Concomitant]
  14. KLONOPIN [Concomitant]
  15. WELLBUTRIN XL [Concomitant]
  16. WELLBUTRIN XL [Concomitant]
  17. WELCHOL [Concomitant]
  18. WELCHOL [Concomitant]
  19. COMBIVENT [Concomitant]
  20. COMBIVENT [Concomitant]
  21. OMEPRAZOLE [Concomitant]
  22. OMEPRAZOLE [Concomitant]
  23. FOLIC ACID [Concomitant]
  24. FOLIC ACID [Concomitant]
  25. ZESTRIL [Concomitant]
  26. ZESTRIL [Concomitant]
  27. LORTAB [Concomitant]
  28. LORTAB [Concomitant]
  29. XALATAN [Concomitant]
  30. XALATAN [Concomitant]
  31. DICLOFENAC SODIUM [Concomitant]
  32. DICLOFENAC SODIUM [Concomitant]
  33. PULMICORT [Concomitant]
  34. PULMICORT [Concomitant]
  35. DUONEB [Concomitant]
  36. DUONEB [Concomitant]
  37. THEOPHYLLINE [Concomitant]
  38. THEOPHYLLINE [Concomitant]
  39. LASIX [Concomitant]
  40. LASIX [Concomitant]
  41. LIDODERM [Concomitant]
  42. LIDODERM [Concomitant]

REACTIONS (13)
  - BLOOD DISORDER [None]
  - BONE PAIN [None]
  - CARDIOACTIVE DRUG LEVEL DECREASED [None]
  - DEVICE FAILURE [None]
  - HEPATIC ENZYME INCREASED [None]
  - HIGH DENSITY LIPOPROTEIN DECREASED [None]
  - HYPOAESTHESIA [None]
  - LOW DENSITY LIPOPROTEIN INCREASED [None]
  - SENSORY LOSS [None]
  - TOOTH DISCOLOURATION [None]
  - TOOTH DISORDER [None]
  - TOOTH EROSION [None]
  - TOOTH FRACTURE [None]
